FAERS Safety Report 8068797-X (Version None)
Quarter: 2012Q1

REPORT INFORMATION
  Report Type: 
  Country: None (occurrence: None)
  Receive Date: 20120124
  Receipt Date: 20120123
  Transmission Date: 20120608
  Serious: Yes (Hospitalization)
  Sender: FDA-Public Use
  Company Number: AU-AMGEN-AUSCT2012000438

PATIENT
  Age: 82 Year
  Sex: Male

DRUGS (6)
  1. PRAVASTATIN [Concomitant]
     Dosage: 10 MEQ, QD
     Route: 048
     Dates: start: 20110611
  2. ACETAMINOPHEN [Concomitant]
     Dosage: UNK
     Dates: start: 20111202, end: 20120103
  3. ROMIPLOSTIM [Suspect]
     Indication: THROMBOCYTOPENIC PURPURA
     Dosage: 738 MUG, QWK
     Route: 058
     Dates: start: 20100902
  4. PANTOPRAZOLE [Concomitant]
     Indication: GASTROINTESTINAL HAEMORRHAGE
     Dosage: 40 MG, BID
     Route: 048
     Dates: start: 20100909
  5. DANAZOL [Concomitant]
     Dosage: 200 MG, BID
     Route: 048
     Dates: start: 20110225
  6. URAL [Concomitant]
     Dosage: UNK UNK, QD
     Route: 048
     Dates: start: 20110720

REACTIONS (1)
  - HYPERTENSION [None]
